FAERS Safety Report 4678554-X (Version None)
Quarter: 2005Q2

REPORT INFORMATION
  Report Type: 
  Country: None (occurrence: None)
  Receive Date: 20050527
  Receipt Date: 20050519
  Transmission Date: 20051028
  Serious: Yes (Other)
  Sender: FDA-Public Use
  Company Number: JP-2005-008107

PATIENT
  Age: 73 Year
  Sex: Male

DRUGS (1)
  1. PROSCOPE 150 (IOPROMIDE) N/A [Suspect]
     Indication: SCAN WITH CONTRAST
     Dosage: 100 ML, 1 DOSE, PARENTERAL
     Route: 051
     Dates: start: 20050511, end: 20050511

REACTIONS (3)
  - CARDIO-RESPIRATORY ARREST [None]
  - FALL [None]
  - LOSS OF CONSCIOUSNESS [None]
